FAERS Safety Report 9416581 (Version 1)
Quarter: 2013Q3

REPORT INFORMATION
  Report Type: Spontaneous
  Country: US (occurrence: US)
  Receive Date: 20130724
  Receipt Date: 20130724
  Transmission Date: 20140515
  Serious: Yes (Hospitalization)
  Sender: FDA-Public Use
  Company Number: US-MERCK-1307USA011151

PATIENT
  Age: 66 Year
  Sex: Female

DRUGS (2)
  1. SAPHRIS [Suspect]
     Indication: SCHIZOAFFECTIVE DISORDER
     Dosage: 5 MG, BID
     Route: 060
  2. SAPHRIS [Suspect]
     Dosage: 15 MG
     Route: 060

REACTIONS (1)
  - Nausea [Unknown]
